FAERS Safety Report 15011958 (Version 1)
Quarter: 2018Q2

REPORT INFORMATION
  Report Type: Spontaneous
  Country: PR (occurrence: PR)
  Receive Date: 20180529
  Receipt Date: 20180529
  Transmission Date: 20180711
  Serious: No
  Sender: FDA-Public Use
  Company Number: None

PATIENT
  Age: 36 Year
  Sex: Female
  Weight: 104.4 kg

DRUGS (3)
  1. CEFTRIAXONE. [Suspect]
     Active Substance: CEFTRIAXONE
     Indication: ANIMAL BITE
     Route: 042
     Dates: start: 20180525, end: 20180528
  2. DIPHENHYDRAMINE 50MG [Concomitant]
     Active Substance: DIPHENHYDRAMINE
     Dates: start: 20180525, end: 20180525
  3. 0.45% SALINE SOLUTION 1000ML [Concomitant]
     Dates: start: 20180525, end: 20180528

REACTIONS (2)
  - Dysphagia [None]
  - Rash pruritic [None]

NARRATIVE: CASE EVENT DATE: 20180528
